FAERS Safety Report 18460555 (Version 1)
Quarter: 2020Q4

REPORT INFORMATION
  Report Type: Spontaneous
  Country: US (occurrence: US)
  Receive Date: 20201104
  Receipt Date: 20201104
  Transmission Date: 20210114
  Serious: Yes (Other)
  Sender: FDA-Public Use
  Company Number: US-PFIZER INC-2020422843

PATIENT
  Age: 52 Year
  Sex: Female

DRUGS (1)
  1. XELJANZ XR [Suspect]
     Active Substance: TOFACITINIB CITRATE
     Indication: RHEUMATOID ARTHRITIS
     Dosage: UNK
     Dates: start: 20200714, end: 20201029

REACTIONS (6)
  - Rheumatoid arthritis [Unknown]
  - Renal impairment [Unknown]
  - Blood glucose increased [Unknown]
  - Alopecia [Unknown]
  - Blood cholesterol increased [Unknown]
  - Hypertension [Unknown]

NARRATIVE: CASE EVENT DATE: 2020
